FAERS Safety Report 21878851 (Version 1)
Quarter: 2023Q1

REPORT INFORMATION
  Report Type: Spontaneous
  Country: US (occurrence: US)
  Receive Date: 20230118
  Receipt Date: 20230118
  Transmission Date: 20230418
  Serious: No
  Sender: FDA-Public Use
  Company Number: US-PFIZER INC-202300016580

PATIENT
  Age: 51 Year
  Sex: Female
  Weight: 65.32 kg

DRUGS (1)
  1. IBRANCE [Suspect]
     Active Substance: PALBOCICLIB
     Dosage: 75MG ONCE A DAY FOR 21 DAYS AND THEN TAKE 7 DAYS OFF
     Dates: start: 201608

REACTIONS (1)
  - Neoplasm recurrence [Unknown]
